FAERS Safety Report 23266288 (Version 2)
Quarter: 2023Q4

REPORT INFORMATION
  Report Type: Spontaneous
  Country: US (occurrence: US)
  Receive Date: 20231206
  Receipt Date: 20231208
  Transmission Date: 20240110
  Serious: No
  Sender: FDA-Public Use
  Company Number: US-Merck KGaA-7174634

PATIENT
  Age: 33 Year
  Sex: Female

DRUGS (1)
  1. OVIDREL [Suspect]
     Active Substance: CHORIOGONADOTROPIN ALFA
     Indication: Product used for unknown indication
     Dosage: 250 MCG / 1ML (MICROGRAMS PER MILLILITER)
     Dates: start: 20121111

REACTIONS (3)
  - Injury associated with device [Unknown]
  - Foreign body in skin or subcutaneous tissue [Unknown]
  - Needle issue [Unknown]

NARRATIVE: CASE EVENT DATE: 20120901
